FAERS Safety Report 13411092 (Version 3)
Quarter: 2023Q4

REPORT INFORMATION
  Report Type: Spontaneous
  Country: US (occurrence: US)
  Receive Date: 20170406
  Receipt Date: 20231213
  Transmission Date: 20240110
  Serious: No
  Sender: FDA-Public Use
  Company Number: US-JNJFOC-20170306657

PATIENT
  Sex: Male

DRUGS (3)
  1. RISPERDAL [Suspect]
     Active Substance: RISPERIDONE
     Indication: Behaviour disorder
     Dosage: IN VARYING DOSES OF 0.25 MG, 0.5 MG, 0.75 MG WITH VARYING FREQUENCIES OF TWICE DAILY, EVERY NIGHT
     Route: 048
  2. RISPERDAL [Suspect]
     Active Substance: RISPERIDONE
     Indication: Affective disorder
  3. INVEGA [Suspect]
     Active Substance: PALIPERIDONE
     Indication: Product used for unknown indication
     Route: 048

REACTIONS (1)
  - Injury [Unknown]
